FAERS Safety Report 11824674 (Version 7)
Quarter: 2016Q3

REPORT INFORMATION
  Report Type: Report from Study
  Country: US (occurrence: US)
  Receive Date: 20151210
  Receipt Date: 20160901
  Transmission Date: 20161109
  Serious: Yes (Hospitalization)
  Sender: FDA-Public Use
  Company Number: US-ACTELION-A-NJ2015-128478

PATIENT
  Age: 72 Year
  Sex: Female

DRUGS (5)
  1. OPSUMIT [Suspect]
     Active Substance: MACITENTAN
     Indication: PULMONARY ARTERIAL HYPERTENSION
     Dosage: 10 MG, QD
     Route: 048
     Dates: start: 20151104, end: 20151202
  2. FLOLAN [Suspect]
     Active Substance: EPOPROSTENOL SODIUM
     Indication: PULMONARY ARTERIAL HYPERTENSION
     Dosage: 12 NG/KG, PER MIN
     Route: 042
     Dates: start: 201510
  3. WARFARIN [Concomitant]
     Active Substance: WARFARIN
  4. RIOCIGUAT [Concomitant]
     Active Substance: RIOCIGUAT
  5. TYVASO [Concomitant]
     Active Substance: TREPROSTINIL

REACTIONS (24)
  - Red blood cell count decreased [Unknown]
  - Hypoxia [Recovered/Resolved]
  - Dyspnoea [Not Recovered/Not Resolved]
  - Influenza like illness [Not Recovered/Not Resolved]
  - Cough [Unknown]
  - Upper respiratory tract infection [Unknown]
  - International normalised ratio increased [Unknown]
  - Anaemia [Unknown]
  - Retching [Not Recovered/Not Resolved]
  - Respiratory disorder [Unknown]
  - Hypotension [Unknown]
  - Urinary tract infection [Unknown]
  - Packed red blood cell transfusion [Unknown]
  - Chest pain [Unknown]
  - Haemoglobin decreased [Unknown]
  - Acute respiratory failure [Unknown]
  - Pulmonary arterial pressure increased [Unknown]
  - Oxygen saturation decreased [Unknown]
  - Headache [Not Recovered/Not Resolved]
  - Occult blood [Unknown]
  - Cardiac failure congestive [Unknown]
  - Vomiting [Unknown]
  - Endotracheal intubation [Unknown]
  - Dyspnoea exertional [Not Recovered/Not Resolved]

NARRATIVE: CASE EVENT DATE: 20151121
